FAERS Safety Report 6663606-5 (Version None)
Quarter: 2010Q2

REPORT INFORMATION
  Report Type: 
  Country: None (occurrence: None)
  Receive Date: 20100401
  Receipt Date: 20100322
  Transmission Date: 20101027
  Serious: Yes (Congenital Anomaly, Other)
  Sender: FDA-Public Use
  Company Number: NZ-ROCHE-582063

PATIENT
  Sex: Male
  Weight: 1.6 kg

DRUGS (4)
  1. HERCEPTIN [Suspect]
     Indication: BREAST CANCER
     Dosage: DOSAGE: 9 DOSES.
     Route: 064
     Dates: start: 20061123, end: 20070418
  2. TAMOXIFEN CITRATE [Concomitant]
     Dates: start: 20061123, end: 20070516
  3. METHADONE [Concomitant]
  4. PACLITAXEL [Concomitant]
     Dosage: DOSAGE: 4 CYCLES
     Dates: start: 20060831, end: 20061102

REACTIONS (9)
  - ACUTE RESPIRATORY DISTRESS SYNDROME [None]
  - DRUG EXPOSURE DURING PREGNANCY [None]
  - LUNG DISORDER [None]
  - OLIGOHYDRAMNIOS [None]
  - PREMATURE RUPTURE OF MEMBRANES [None]
  - PULMONARY HYPOPLASIA [None]
  - RENAL FAILURE ACUTE [None]
  - RESPIRATORY ARREST [None]
  - RESPIRATORY SYNCYTIAL VIRUS INFECTION [None]
